FAERS Safety Report 9098878 (Version 1)
Quarter: 2013Q1

REPORT INFORMATION
  Report Type: Spontaneous
  Country: US (occurrence: US)
  Receive Date: 20130214
  Receipt Date: 20130214
  Transmission Date: 20140127
  Serious: No
  Sender: FDA-Public Use
  Company Number: US-PFIZER INC-2013032580

PATIENT
  Age: 76 Year
  Sex: Male

DRUGS (4)
  1. LIPITOR [Suspect]
     Dosage: UNK
  2. GLUCOTROL XL [Suspect]
     Dosage: UNK
  3. NORVASC [Suspect]
     Dosage: UNK
  4. ACCUPRIL [Suspect]
     Dosage: UNK

REACTIONS (1)
  - Hearing impaired [Not Recovered/Not Resolved]
